FAERS Safety Report 11281577 (Version 1)
Quarter: 2015Q3

REPORT INFORMATION
  Report Type: Spontaneous
  Country: US (occurrence: US)
  Receive Date: 20150717
  Receipt Date: 20150717
  Transmission Date: 20151125
  Serious: Yes (Hospitalization)
  Sender: FDA-Public Use
  Company Number: US-ASTRAZENECA-2015SE67633

PATIENT
  Age: 17498 Day
  Sex: Male
  Weight: 113.4 kg

DRUGS (5)
  1. FARXIGA [Interacting]
     Active Substance: DAPAGLIFLOZIN PROPANEDIOL
     Indication: TYPE 2 DIABETES MELLITUS
     Route: 048
     Dates: start: 20150616
  2. INSULIN [Concomitant]
     Active Substance: INSULIN NOS
     Indication: TYPE 2 DIABETES MELLITUS
     Route: 058
  3. FARXIGA [Suspect]
     Active Substance: DAPAGLIFLOZIN PROPANEDIOL
     Indication: TYPE 2 DIABETES MELLITUS
     Route: 048
  4. VANCOMYCIN [Interacting]
     Active Substance: VANCOMYCIN
     Indication: INFECTED SKIN ULCER
     Dosage: TWO TIMES A DAY
  5. VANCOMYCIN [Interacting]
     Active Substance: VANCOMYCIN
     Indication: INFECTED SKIN ULCER
     Dosage: ONCE DAILY

REACTIONS (4)
  - Drug interaction [Unknown]
  - Infected skin ulcer [Recovering/Resolving]
  - Drug dose omission [Recovered/Resolved]
  - Drug level increased [Not Recovered/Not Resolved]

NARRATIVE: CASE EVENT DATE: 20150608
